FAERS Safety Report 9350250 (Version 2)
Quarter: 2013Q3

REPORT INFORMATION
  Report Type: Spontaneous
  Country: FR (occurrence: FR)
  Receive Date: 20130617
  Receipt Date: 20130928
  Transmission Date: 20140515
  Serious: Yes (Hospitalization)
  Sender: FDA-Public Use
  Company Number: FR-ROCHE-1237504

PATIENT
  Age: 84 Year
  Sex: Female
  Weight: 70 kg

DRUGS (3)
  1. LUCENTIS [Suspect]
     Indication: AGE-RELATED MACULAR DEGENERATION
     Route: 050
  2. SOTALOL [Concomitant]
     Dosage: DOSE STARTED EARLIER THAN 2000.
     Route: 065
  3. URBANYL [Concomitant]
     Dosage: DOSE STARTED EARLIER THAN 2000.
     Route: 065

REACTIONS (6)
  - Cerebrovascular accident [Recovered/Resolved with Sequelae]
  - Malaise [Unknown]
  - Loss of consciousness [Unknown]
  - Tachycardia [Unknown]
  - Extrasystoles [Unknown]
  - Hypertension [Unknown]
